FAERS Safety Report 25440267 (Version 2)
Quarter: 2025Q2

REPORT INFORMATION
  Report Type: Spontaneous
  Country: AU (occurrence: AU)
  Receive Date: 20250616
  Receipt Date: 20250620
  Transmission Date: 20250717
  Serious: Yes (Life-Threatening, Hospitalization)
  Sender: MYLAN
  Company Number: AU-MYLANLABS-2025M1050324

PATIENT
  Age: 49 Year
  Sex: Male

DRUGS (5)
  1. CLOZAPINE [Suspect]
     Active Substance: CLOZAPINE
     Indication: Delusion
  2. OLANZAPINE [Suspect]
     Active Substance: OLANZAPINE
     Indication: Delusion
     Dosage: 10 MILLIGRAM, QD
  3. OLANZAPINE [Suspect]
     Active Substance: OLANZAPINE
  4. FLUVOXAMINE [Suspect]
     Active Substance: FLUVOXAMINE
     Indication: Delusion
  5. FLUVOXAMINE [Suspect]
     Active Substance: FLUVOXAMINE

REACTIONS (3)
  - Pulmonary embolism [Recovered/Resolved]
  - Drug ineffective [Unknown]
  - Off label use [Unknown]
